FAERS Safety Report 19881981 (Version 2)
Quarter: 2021Q4

REPORT INFORMATION
  Report Type: Spontaneous
  Country: US (occurrence: US)
  Receive Date: 20210924
  Receipt Date: 20211111
  Transmission Date: 20220303
  Serious: Yes (Other)
  Sender: FDA-Public Use
  Company Number: US-PFIZER INC-2016128835

PATIENT
  Age: 9 Month
  Sex: Male

DRUGS (6)
  1. THYMOCYTE IMMUNE GLOBULIN NOS [Suspect]
     Active Substance: THYMOCYTE IMMUNE GLOBULIN NOS
     Indication: Stem cell transplant
     Dosage: 24 MG, CYCLIC, 1 DAY
  2. CYTOXAN [Suspect]
     Active Substance: CYCLOPHOSPHAMIDE
     Indication: Stem cell transplant
     Dosage: 400 MG, CYCLIC, 4 DAYS
  3. BUSULFAN [Suspect]
     Active Substance: BUSULFAN
     Indication: Stem cell transplant
     Dosage: 31 MG, CYCLIC, 4 DAYS
  4. MESNA [Suspect]
     Active Substance: MESNA
     Indication: Stem cell transplant
     Dosage: 400 MG, UNK
  5. HUMAN IMMUNOGLOBULIN G [Concomitant]
     Active Substance: HUMAN IMMUNOGLOBULIN G
     Indication: Immunodeficiency
     Dosage: UNK
     Route: 048
  6. HUMAN IMMUNOGLOBULIN G [Concomitant]
     Active Substance: HUMAN IMMUNOGLOBULIN G
     Dosage: UNK
     Route: 042

REACTIONS (7)
  - Cystitis haemorrhagic [Unknown]
  - Pruritus [Unknown]
  - Pyrexia [Unknown]
  - Tachycardia [Unknown]
  - Malaise [Unknown]
  - Diarrhoea [Unknown]
  - Off label use [Unknown]
